FAERS Safety Report 8548963-7 (Version None)
Quarter: 2012Q3

REPORT INFORMATION
  Report Type: 
  Country: None (occurrence: None)
  Receive Date: 20120730
  Receipt Date: 20120720
  Transmission Date: 20120928
  Serious: Yes (Hospitalization)
  Sender: FDA-Public Use
  Company Number: US-BAYER-2012-074508

PATIENT
  Age: 19 Year
  Sex: Female

DRUGS (3)
  1. YAZ [Suspect]
  2. YASMIN [Suspect]
  3. AMITRIPTYLINE HCL [Concomitant]
     Indication: HEADACHE
     Dosage: 10 MG, UNK
     Route: 048

REACTIONS (1)
  - PULMONARY EMBOLISM [None]
